FAERS Safety Report 14108118 (Version 1)
Quarter: 2017Q4

REPORT INFORMATION
  Report Type: Spontaneous
  Country: HR (occurrence: HR)
  Receive Date: 20171019
  Receipt Date: 20171019
  Transmission Date: 20180321
  Serious: Yes (Hospitalization, Other)
  Sender: FDA-Public Use
  Company Number: HR-IMPAX LABORATORIES, INC-2017-IPXL-02900

PATIENT
  Age: 13 Year
  Sex: Female

DRUGS (3)
  1. LAMOTRIGINE ODT [Suspect]
     Active Substance: LAMOTRIGINE
     Indication: HEADACHE
  2. LAMOTRIGINE ODT [Suspect]
     Active Substance: LAMOTRIGINE
     Indication: PRODUCT USE IN UNAPPROVED INDICATION
  3. LAMOTRIGINE ODT [Suspect]
     Active Substance: LAMOTRIGINE
     Indication: ELECTROENCEPHALOGRAM ABNORMAL
     Dosage: UNK
     Route: 065

REACTIONS (6)
  - Product use in unapproved indication [Unknown]
  - Pupils unequal [Unknown]
  - Staphylococcal sepsis [Recovering/Resolving]
  - Acute respiratory failure [Recovering/Resolving]
  - Haemothorax [Recovering/Resolving]
  - Drug reaction with eosinophilia and systemic symptoms [Recovering/Resolving]
